FAERS Safety Report 9009143 (Version 2)
Quarter: 2013Q1

REPORT INFORMATION
  Report Type: Report from Study
  Country: US (occurrence: US)
  Receive Date: 20130111
  Receipt Date: 20130114
  Transmission Date: 20140127
  Serious: Yes (Hospitalization)
  Sender: FDA-Public Use
  Company Number: US-JNJFOC-20130101642

PATIENT
  Age: 16 Year
  Sex: Male
  Weight: 109.5 kg

DRUGS (17)
  1. REMICADE [Suspect]
     Indication: INFLAMMATORY BOWEL DISEASE
     Route: 042
     Dates: start: 20070324, end: 200710
  2. HUMIRA [Concomitant]
     Dates: start: 20071025
  3. METHOTREXATE [Concomitant]
  4. FOLIC ACID [Concomitant]
  5. IMODIUM [Concomitant]
  6. LEXAPRO [Concomitant]
  7. ANTIBIOTICS [Concomitant]
     Indication: INFLAMMATORY BOWEL DISEASE
  8. SANDOSTATIN [Concomitant]
  9. ZOFRAN [Concomitant]
  10. PRILOSEC [Concomitant]
  11. PROAIR HFA [Concomitant]
     Route: 055
  12. TACROLIMUS [Concomitant]
  13. PROPRANOLOL [Concomitant]
  14. WELCHOL [Concomitant]
  15. AMLODIPINE [Concomitant]
  16. B2 [Concomitant]
  17. ISRADIPINE [Concomitant]

REACTIONS (1)
  - Diarrhoea [Recovered/Resolved with Sequelae]
